FAERS Safety Report 7611878-2 (Version None)
Quarter: 2011Q3

REPORT INFORMATION
  Report Type: 
  Country: None (occurrence: None)
  Receive Date: 20110715
  Receipt Date: 20110712
  Transmission Date: 20111222
  Serious: Yes (Death)
  Sender: FDA-Public Use
  Company Number: DE-ABBOTT-11P-062-0838346-00

PATIENT
  Sex: Female

DRUGS (22)
  1. CALCIUMACETAT [Concomitant]
     Route: 048
     Dates: start: 20080122, end: 20101007
  2. METAMIZOL [Concomitant]
     Indication: PRODUCT USED FOR UNKNOWN INDICATION
     Dosage: 80 DROPS DAILY
     Route: 048
     Dates: start: 20080723
  3. MCP [Concomitant]
     Indication: PRODUCT USED FOR UNKNOWN INDICATION
     Dosage: 40 DROPS DAILY
     Dates: start: 20101102, end: 20101107
  4. CALCIUMACETAT [Concomitant]
     Indication: PRODUCT USED FOR UNKNOWN INDICATION
     Route: 048
  5. PHOSPHONORM [Concomitant]
     Indication: PRODUCT USED FOR UNKNOWN INDICATION
     Route: 048
  6. ONE ALPHA [Concomitant]
     Indication: PRODUCT USED FOR UNKNOWN INDICATION
     Dosage: 3ML PER WEEK
     Route: 042
     Dates: start: 20100520, end: 20100824
  7. RAMIPRIL [Concomitant]
     Indication: PRODUCT USED FOR UNKNOWN INDICATION
     Route: 048
     Dates: start: 20090602
  8. PHOSPHONORM [Concomitant]
     Route: 048
     Dates: start: 20090305
  9. HUMINSULIN BASAL [Concomitant]
     Indication: PRODUCT USED FOR UNKNOWN INDICATION
     Dosage: PEN
     Route: 058
     Dates: start: 20081009
  10. CALCIUMACETAT [Concomitant]
     Route: 048
     Dates: start: 20090122, end: 20101007
  11. ZEMPLAR [Suspect]
     Indication: HYPERPARATHYROIDISM SECONDARY
     Dosage: 10 MCG PER WEEK
     Route: 042
     Dates: start: 20101028, end: 20101107
  12. FUROSEMIDE [Concomitant]
     Indication: PRODUCT USED FOR UNKNOWN INDICATION
     Route: 048
     Dates: start: 20081118
  13. SIMVASTATIN [Concomitant]
     Indication: PRODUCT USED FOR UNKNOWN INDICATION
     Dosage: 60 MG DAILY
     Route: 048
     Dates: start: 20081009
  14. SILAPO [Concomitant]
     Indication: PRODUCT USED FOR UNKNOWN INDICATION
     Dosage: 3000IU PER WEEK
     Route: 042
     Dates: start: 20101012, end: 20101107
  15. ALPHACALCIDOL [Concomitant]
     Indication: PRODUCT USED FOR UNKNOWN INDICATION
     Dosage: THRICE 1ML PER WEEK
     Route: 042
  16. FERMED [Concomitant]
     Indication: PRODUCT USED FOR UNKNOWN INDICATION
     Dosage: 50MG PER WEEK
     Route: 042
     Dates: start: 20100803
  17. DEKRISTOL [Concomitant]
     Indication: PRODUCT USED FOR UNKNOWN INDICATION
     Dosage: 20000IU PER WEEK
     Route: 048
     Dates: start: 20070418
  18. INSUMAN RAPID [Concomitant]
     Indication: PRODUCT USED FOR UNKNOWN INDICATION
     Dosage: 100IU/ML
     Route: 058
     Dates: start: 20080715
  19. ZEMPLAR [Suspect]
     Dosage: 15 MCG PER WEEK
     Route: 042
     Dates: start: 20100824
  20. ASPIRIN [Concomitant]
     Indication: PRODUCT USED FOR UNKNOWN INDICATION
     Dosage: 100 OPD
     Dates: start: 20070316
  21. OMEPRAZOLE [Concomitant]
     Indication: PRODUCT USED FOR UNKNOWN INDICATION
     Dates: start: 20080628
  22. CHOLECALCIFEROL [Concomitant]
     Indication: PRODUCT USED FOR UNKNOWN INDICATION
     Dosage: 20000IU PER WEEK
     Route: 048

REACTIONS (2)
  - CARDIAC ARREST [None]
  - DEATH [None]
